FAERS Safety Report 5773734-4 (Version None)
Quarter: 2008Q2

REPORT INFORMATION
  Report Type: 
  Country: None (occurrence: None)
  Receive Date: 20080616
  Receipt Date: 20080611
  Transmission Date: 20081010
  Serious: Yes (Hospitalization)
  Sender: FDA-Public Use
  Company Number: US-BRISTOL-MYERS SQUIBB COMPANY-14224703

PATIENT
  Age: 66 Year
  Sex: Female

DRUGS (22)
  1. MAXIPIME [Suspect]
     Indication: PLEURAL EFFUSION
     Route: 042
     Dates: start: 20080605, end: 20080610
  2. MAXIPIME [Suspect]
     Indication: LUNG INFECTION
     Route: 042
     Dates: start: 20080605, end: 20080610
  3. VANCOMYCIN [Suspect]
     Dosage: DOSE REDUCED TO 1 GM EVERY 24 HRS.
     Route: 042
  4. LEVAQUIN [Suspect]
     Route: 042
     Dates: start: 20080602, end: 20080605
  5. DIGOXIN [Concomitant]
  6. CARDIZEM [Concomitant]
  7. LASIX [Concomitant]
  8. SYNTHROID [Concomitant]
  9. PROTONIX [Concomitant]
  10. REGLAN [Concomitant]
  11. MYLANTA [Concomitant]
  12. COLACE [Concomitant]
  13. FERROUS SULFATE TAB [Concomitant]
  14. OS-CAL + D [Concomitant]
  15. MULTIVITAMIN WITH MINERALS [Concomitant]
  16. POTASSIUM CHLORIDE [Concomitant]
     Route: 048
  17. MORPHINE [Concomitant]
  18. ULTRAM [Concomitant]
  19. BENADRYL [Concomitant]
  20. ROBITUSSIN DM [Concomitant]
  21. ATROVENT [Concomitant]
     Dosage: NEBULIZED.
  22. ALBUTEROL [Concomitant]

REACTIONS (1)
  - HEPATIC ENZYME INCREASED [None]
